FAERS Safety Report 8474713-9 (Version None)
Quarter: 2012Q2

REPORT INFORMATION
  Report Type: 
  Country: None (occurrence: None)
  Receive Date: 20120622
  Receipt Date: 20120611
  Transmission Date: 20120825
  Serious: Yes (Life-Threatening, Hospitalization, Other)
  Sender: FDA-Public Use
  Company Number: 2012P1040870

PATIENT
  Age: 64 Year
  Sex: Male

DRUGS (5)
  1. AMOXICILLIN [Suspect]
     Indication: DYSPNOEA
     Dosage: PO
     Route: 048
  2. STATIN [Concomitant]
  3. PHENYTOIN [Concomitant]
  4. ASPIRIN [Concomitant]
  5. BRONCHODIALATORS [Concomitant]

REACTIONS (11)
  - KOUNIS SYNDROME [None]
  - DYSPNOEA [None]
  - ANAPHYLACTIC SHOCK [None]
  - TACHYPNOEA [None]
  - RASH [None]
  - HYPOVENTILATION [None]
  - CHEST PAIN [None]
  - VOMITING [None]
  - CORONARY ARTERY THROMBOSIS [None]
  - URTICARIA [None]
  - NAUSEA [None]
